FAERS Safety Report 19633869 (Version 1)
Quarter: 2021Q3

REPORT INFORMATION
  Report Type: Spontaneous
  Country: US (occurrence: US)
  Receive Date: 20210730
  Receipt Date: 20210730
  Transmission Date: 20211014
  Serious: No
  Sender: FDA-Public Use
  Company Number: US-GLAXOSMITHKLINE-US2021AMR161969

PATIENT
  Age: 71 Year
  Sex: Female

DRUGS (2)
  1. ZEJULA [Suspect]
     Active Substance: NIRAPARIB
     Indication: OVARIAN CANCER
     Dosage: 2 DF, QD, (CAPSULES)
     Route: 048
     Dates: start: 20210720
  2. TYLENOL [Concomitant]
     Active Substance: ACETAMINOPHEN
     Indication: NECK PAIN
     Dosage: UNK, 500 TO 1000 MG AS NEEDED

REACTIONS (1)
  - Myalgia [Not Recovered/Not Resolved]

NARRATIVE: CASE EVENT DATE: 202107
